FAERS Safety Report 6786334-4 (Version None)
Quarter: 2010Q2

REPORT INFORMATION
  Report Type: 
  Country: None (occurrence: None)
  Receive Date: 20100623
  Receipt Date: 20100623
  Transmission Date: 20101027
  Serious: Yes (Other)
  Sender: FDA-Public Use
  Company Number: None

PATIENT
  Sex: Female

DRUGS (3)
  1. CONCENTRATED TYLENOL INFANT DROPS [Suspect]
     Indication: TEETHING
     Dosage: 1.6 MGS EVERY 4-6 HRS BY MOUTH
     Route: 048
     Dates: start: 20100101, end: 20100401
  2. CONCENTRATED TYLENOL INFANT DROPS [Suspect]
     Indication: PYREXIA
     Dosage: 1.6 MGS EVERY 4-6 HRS BY MOUTH
     Route: 048
     Dates: start: 20100201, end: 20100501
  3. CONCENTRATED TYLENOL INFANT DROPS [Suspect]
     Indication: TEETHING
     Dosage: 1.6 MGS EVERY 4-6 HRS BY MOUTH
     Route: 048
     Dates: start: 20100201, end: 20100501

REACTIONS (7)
  - ABDOMINAL PAIN UPPER [None]
  - FLATULENCE [None]
  - GASTROINTESTINAL INFECTION [None]
  - KLEBSIELLA INFECTION [None]
  - PRODUCT CONTAMINATION MICROBIAL [None]
  - PRODUCT QUALITY ISSUE [None]
  - VOMITING [None]
